FAERS Safety Report 24565529 (Version 2)
Quarter: 2024Q4

REPORT INFORMATION
  Report Type: Spontaneous
  Country: US (occurrence: US)
  Receive Date: 20241030
  Receipt Date: 20241106
  Transmission Date: 20250115
  Serious: Yes (Other)
  Sender: RANBAXY
  Company Number: US-SUN PHARMACEUTICAL INDUSTRIES LTD-2024R1-476087

PATIENT
  Age: 56 Year
  Sex: Male

DRUGS (1)
  1. ACETAZOLAMIDE [Suspect]
     Active Substance: ACETAZOLAMIDE
     Indication: Hypobarism
     Dosage: 250 MILLIGRAM, BID
     Route: 065

REACTIONS (4)
  - Acute kidney injury [Unknown]
  - Exertional rhabdomyolysis [Unknown]
  - Dehydration [Unknown]
  - Hypovolaemia [Unknown]
